FAERS Safety Report 10143105 (Version 1)
Quarter: 2014Q2

REPORT INFORMATION
  Report Type: Spontaneous
  Country: JP (occurrence: JP)
  Receive Date: 20140430
  Receipt Date: 20140430
  Transmission Date: 20141212
  Serious: Yes (Other)
  Sender: FDA-Public Use
  Company Number: JP-JNJFOC-20140418667

PATIENT
  Sex: 0

DRUGS (1)
  1. SIMPONI [Suspect]
     Indication: RHEUMATOID ARTHRITIS
     Route: 058

REACTIONS (7)
  - Neoplasm malignant [Unknown]
  - Lung disorder [Unknown]
  - Blood count abnormal [Unknown]
  - Infection [Unknown]
  - Hypersensitivity [Unknown]
  - Rash [Unknown]
  - Autoimmune disorder [Unknown]
